FAERS Safety Report 7119406-5 (Version None)
Quarter: 2010Q4

REPORT INFORMATION
  Report Type: 
  Country: None (occurrence: None)
  Receive Date: 20101123
  Receipt Date: 20101108
  Transmission Date: 20110411
  Serious: Yes (Hospitalization, Other)
  Sender: FDA-Public Use
  Company Number: US-AMGEN-USASP2010005448

PATIENT

DRUGS (4)
  1. PROCRIT [Suspect]
     Indication: ANAEMIA
     Dosage: 10000 IU, Q2WK
     Route: 058
     Dates: start: 20070101, end: 20100901
  2. PROCRIT [Suspect]
     Dosage: 10000 IU, QWK
     Dates: start: 20100901
  3. MORPHINE [Concomitant]
     Dosage: UNK
  4. CODEINE [Concomitant]

REACTIONS (6)
  - ANAEMIA [None]
  - FLUSHING [None]
  - HYPERSENSITIVITY [None]
  - SKIN BURNING SENSATION [None]
  - UPPER LIMB FRACTURE [None]
  - UTERINE HAEMORRHAGE [None]
